FAERS Safety Report 6317572-2 (Version None)
Quarter: 2009Q3

REPORT INFORMATION
  Report Type: 
  Country: None (occurrence: None)
  Receive Date: 20090821
  Receipt Date: 20090813
  Transmission Date: 20100115
  Serious: Yes (Other)
  Sender: FDA-Public Use
  Company Number: US-BAYER-200929910NA

PATIENT
  Sex: Female

DRUGS (1)
  1. MIRENA [Suspect]
     Indication: DRUG USE FOR UNKNOWN INDICATION
     Dosage: CONTINUOUS
     Route: 015
     Dates: start: 20070501, end: 20090812

REACTIONS (4)
  - FIBROMYALGIA [None]
  - PREMATURE MENOPAUSE [None]
  - SLEEP APNOEA SYNDROME [None]
  - SURGERY [None]
